FAERS Safety Report 7022124-5 (Version None)
Quarter: 2010Q3

REPORT INFORMATION
  Report Type: 
  Country: None (occurrence: None)
  Receive Date: 20100930
  Receipt Date: 20100921
  Transmission Date: 20110219
  Serious: Yes (Death)
  Sender: FDA-Public Use
  Company Number: US-SANOFI-AVENTIS-2010SA057447

PATIENT
  Age: 53 Year
  Sex: Female

DRUGS (5)
  1. FERRLECIT [Suspect]
     Route: 051
  2. NORMAL SALINE [Concomitant]
     Dosage: 125 MG OF FERRLECIT IN 250 ML OF NORMAL SALINE
     Route: 042
  3. NORMAL SALINE [Concomitant]
     Dosage: 25 MG OF BENADRYL AND 10 MG OF DECADRON IN 50 ML OF NORMAL SALINE
     Route: 042
  4. DIPHENHYDRAMINE HYDROCHLORIDE [Concomitant]
     Indication: PREMEDICATION
     Route: 042
  5. DEXAMETHASONE [Concomitant]
     Route: 042

REACTIONS (1)
  - DEATH [None]
